FAERS Safety Report 4290741-1 (Version None)
Quarter: 2004Q1

REPORT INFORMATION
  Report Type: 
  Country: None (occurrence: None)
  Receive Date: 20040209
  Receipt Date: 20040209
  Transmission Date: 20041129
  Serious: Yes (Other)
  Sender: FDA-Public Use
  Company Number: None

PATIENT
  Sex: Female

DRUGS (3)
  1. TRI-SPRINTEC [Suspect]
     Indication: CONTRACEPTION
     Dosage: 1 TAB PO DAILY
     Route: 048
     Dates: start: 20040119
  2. TRI-SPRINTEC [Suspect]
     Indication: CONTRACEPTION
     Dosage: 1 TAB PO DAILY
     Route: 048
     Dates: start: 20040205
  3. ZOLOFT [Concomitant]

REACTIONS (2)
  - METRORRHAGIA [None]
  - PHARMACEUTICAL PRODUCT COMPLAINT [None]
